FAERS Safety Report 11787415 (Version 1)
Quarter: 2015Q4

REPORT INFORMATION
  Report Type: Spontaneous
  Country: IT (occurrence: IT)
  Receive Date: 20151130
  Receipt Date: 20151130
  Transmission Date: 20160305
  Serious: Yes (Hospitalization, Other)
  Sender: FDA-Public Use
  Company Number: PHHY2015IT154507

PATIENT
  Age: 27 Year
  Sex: Female

DRUGS (2)
  1. ROMIPLOSTIM [Suspect]
     Active Substance: ROMIPLOSTIM
     Indication: IMMUNE THROMBOCYTOPENIC PURPURA
     Dosage: 1 UG/KG, UNK
     Route: 065
     Dates: start: 201306, end: 201403
  2. ELTROMBOPAG [Suspect]
     Active Substance: ELTROMBOPAG
     Indication: IMMUNE THROMBOCYTOPENIC PURPURA
     Dosage: UNK
     Route: 065
     Dates: start: 201301, end: 201403

REACTIONS (4)
  - Metrorrhagia [Unknown]
  - Angiopathy [Unknown]
  - Platelet count abnormal [Recovered/Resolved]
  - Haemorrhage [Unknown]
